FAERS Safety Report 6699484-8 (Version None)
Quarter: 2010Q2

REPORT INFORMATION
  Report Type: 
  Country: None (occurrence: None)
  Receive Date: 20100426
  Receipt Date: 20100412
  Transmission Date: 20101027
  Serious: Yes (Hospitalization)
  Sender: FDA-Public Use
  Company Number: 009117

PATIENT
  Age: 85 Year
  Sex: Male

DRUGS (11)
  1. PLETAL [Suspect]
     Indication: PERIPHERAL ARTERIAL OCCLUSIVE DISEASE
     Dosage: 100 MG, QD, ORAL
     Route: 048
  2. XIPAMIDE (XIPAMIDE) [Concomitant]
  3. BISOPROLOL FUMARATE [Concomitant]
  4. LERCANIDIPINE [Concomitant]
  5. DIOVANE (VALSARTAN) [Concomitant]
  6. FUROSEMIDE [Concomitant]
  7. FINASTERIDE [Concomitant]
  8. PHENPROCOUMON (PHENPROCOUMON) [Concomitant]
  9. LACTULOSE [Concomitant]
  10. ACTRAPID HUMAN (INSULIN HUMAN) [Concomitant]
  11. PROTAPHAN (INSULIN ISOPHANE, HUMAN BIOSYNTHETIC) [Concomitant]

REACTIONS (7)
  - ATRIAL FIBRILLATION [None]
  - CEREBROVASCULAR ACCIDENT [None]
  - CONTUSION [None]
  - FALL [None]
  - HEMIPARESIS [None]
  - HEMIPLEGIA [None]
  - PNEUMONIA ASPIRATION [None]
